FAERS Safety Report 8508802-7 (Version None)
Quarter: 2012Q3

REPORT INFORMATION
  Report Type: 
  Country: None (occurrence: None)
  Receive Date: 20120703
  Receipt Date: 20120618
  Transmission Date: 20120928
  Serious: Yes (Life-Threatening, Hospitalization)
  Sender: FDA-Public Use
  Company Number: 2012SGN00252

PATIENT
  Age: 74 Year
  Sex: Female
  Weight: 73.5 kg

DRUGS (1)
  1. ADCETRIS [Suspect]
     Indication: NON-HODGKIN'S LYMPHOMA
     Dosage: 126 MG, Q2LD, INTRAVENOUS
     Route: 042
     Dates: start: 20120405, end: 20120516

REACTIONS (3)
  - PNEUMONIA [None]
  - STREPTOCOCCUS TEST POSITIVE [None]
  - SEPTIC SHOCK [None]
